FAERS Safety Report 4411482-3 (Version None)
Quarter: 2004Q2

REPORT INFORMATION
  Report Type: 
  Country: None (occurrence: None)
  Receive Date: 20040630
  Receipt Date: 20040527
  Transmission Date: 20050107
  Serious: No
  Sender: FDA-Public Use
  Company Number: 04P-163-0262204-00

PATIENT
  Age: 77 Year
  Sex: Female
  Weight: 52.1637 kg

DRUGS (5)
  1. HUMIRA [Suspect]
     Indication: RHEUMATOID ARTHRITIS
     Dosage: 40 MG, 1 IN 2 WK, SUBCUTANEOUS
     Route: 058
     Dates: start: 20030101
  2. SALSALATE [Concomitant]
  3. FOLIC ACID [Concomitant]
  4. METHOTREXATE SODIUM [Concomitant]
  5. PARACETAMOL [Concomitant]

REACTIONS (1)
  - MYALGIA [None]
